FAERS Safety Report 22155814 (Version 1)
Quarter: 2023Q1

REPORT INFORMATION
  Report Type: Spontaneous
  Country: US (occurrence: None)
  Receive Date: 20230329
  Receipt Date: 20230329
  Transmission Date: 20230418
  Serious: Yes (Life-Threatening, Hospitalization, Disabling)
  Sender: FDA-Public Use
  Company Number: None

PATIENT
  Age: 55 Year
  Sex: Male

DRUGS (11)
  1. ENVARSUS XR [Suspect]
     Active Substance: TACROLIMUS
     Indication: Renal transplant
     Dosage: 4MG DAILY PO
     Route: 048
     Dates: start: 20230215
  2. ASPIRIN [Concomitant]
     Active Substance: ASPIRIN
  3. Calcium with vitamin D 500/200 [Concomitant]
  4. CLOPIDOGREL [Concomitant]
     Active Substance: CLOPIDOGREL BISULFATE
  5. FERROUS SULFATE [Concomitant]
     Active Substance: FERROUS SULFATE
  6. LOSARTAN [Concomitant]
     Active Substance: LOSARTAN
  7. Maqnesium 250mg [Concomitant]
  8. MYCOPHENOLIC ACID [Concomitant]
     Active Substance: MYCOPHENOLIC ACID
  9. Nifedipine 30mg ER [Concomitant]
  10. PREDNISONE [Concomitant]
     Active Substance: PREDNISONE
  11. ACETAMINOPHEN [Concomitant]
     Active Substance: ACETAMINOPHEN

REACTIONS (2)
  - Cerebrovascular accident [None]
  - Mental impairment [None]

NARRATIVE: CASE EVENT DATE: 20230201
